FAERS Safety Report 8387628-1 (Version None)
Quarter: 2012Q2

REPORT INFORMATION
  Report Type: 
  Country: None (occurrence: None)
  Receive Date: 20120525
  Receipt Date: 20120524
  Transmission Date: 20120825
  Serious: Yes (Death)
  Sender: FDA-Public Use
  Company Number: PHHY2012NL044380

PATIENT
  Sex: Female

DRUGS (3)
  1. ZOMETA [Suspect]
     Dosage: 4 MG / 100 ML ONCE IN 28 DAYS
     Route: 042
     Dates: start: 20120518
  2. ZOMETA [Suspect]
     Indication: BREAST CANCER METASTATIC
     Dosage: 4 MG / 100 ML ONCE IN 28 DAYS
     Route: 042
     Dates: start: 20100521
  3. ZOMETA [Suspect]
     Dosage: 4 MG / 100 ML ONCE IN 28 DAYS
     Route: 042
     Dates: start: 20120423

REACTIONS (1)
  - DEATH [None]
